FAERS Safety Report 8786875 (Version 2)
Quarter: 2012Q4

REPORT INFORMATION
  Report Type: 
  Country: US (occurrence: US)
  Receive Date: 20120914
  Receipt Date: 20121001
  Transmission Date: 20130627
  Serious: No
  Sender: FDA-Public Use
  Company Number: US-009507513-1207USA010661

PATIENT
  Sex: Female

DRUGS (1)
  1. PROVENTIL [Suspect]
     Indication: ASTHMA
     Dosage: 2 puffs every 4 hours as needed
     Route: 055
     Dates: start: 201110

REACTIONS (1)
  - Thermal burn [Unknown]
